FAERS Safety Report 25609598 (Version 3)
Quarter: 2025Q4

REPORT INFORMATION
  Report Type: Report from Study
  Country: IL (occurrence: IL)
  Receive Date: 20250728
  Receipt Date: 20251024
  Transmission Date: 20260118
  Serious: Yes (Other)
  Sender: BIOGEN
  Company Number: IL-BIOGEN-2025BI01316141

PATIENT
  Sex: Female

DRUGS (2)
  1. TOFERSEN [Suspect]
     Active Substance: TOFERSEN
     Indication: Amyotrophic lateral sclerosis
     Route: 037
     Dates: start: 20240307, end: 20250427
  2. TOFERSEN [Suspect]
     Active Substance: TOFERSEN
     Route: 037
     Dates: start: 20240307, end: 20250703

REACTIONS (1)
  - Breast cancer female [Not Recovered/Not Resolved]
